FAERS Safety Report 9910879 (Version 5)
Quarter: 2014Q2

REPORT INFORMATION
  Report Type: Report from Study
  Country: US (occurrence: US)
  Receive Date: 20140219
  Receipt Date: 20140410
  Transmission Date: 20141212
  Serious: Yes (Hospitalization)
  Sender: FDA-Public Use
  Company Number: US-ACTELION-A-US2012-71040

PATIENT
  Age: 46 Year
  Sex: Female

DRUGS (3)
  1. TRACLEER [Suspect]
     Indication: PULMONARY ARTERIAL HYPERTENSION
     Dosage: UNK
     Route: 048
  2. REMODULIN [Concomitant]
  3. SILDENAFIL [Concomitant]

REACTIONS (17)
  - Catheter site infection [Unknown]
  - Dermatitis contact [Unknown]
  - Blister [Unknown]
  - Catheter placement [Unknown]
  - Infusion site pain [Unknown]
  - Infusion site swelling [Unknown]
  - Infusion site erythema [Unknown]
  - Purulent discharge [Unknown]
  - Injection site pain [Unknown]
  - Headache [Unknown]
  - Diarrhoea [Unknown]
  - Pain in jaw [Unknown]
  - Swelling [Unknown]
  - Catheter site discharge [Unknown]
  - Infusion site reaction [Unknown]
  - Infusion site mass [Unknown]
  - Rash [Not Recovered/Not Resolved]
